FAERS Safety Report 8268952-X (Version None)
Quarter: 2012Q2

REPORT INFORMATION
  Report Type: 
  Country: None (occurrence: None)
  Receive Date: 20120409
  Receipt Date: 20120402
  Transmission Date: 20120825
  Serious: Yes (Hospitalization)
  Sender: FDA-Public Use
  Company Number: GB-ASTRAZENECA-2011SE71371

PATIENT
  Sex: Female

DRUGS (4)
  1. CITALOPRAM HYDROBROMIDE [Concomitant]
  2. QUETIAPINE [Suspect]
     Route: 048
     Dates: start: 20111123
  3. QUETIAPINE [Suspect]
     Route: 045
  4. OLANZAPINE [Concomitant]

REACTIONS (4)
  - CONVERSION DISORDER [None]
  - INTENTIONAL DRUG MISUSE [None]
  - WRONG DRUG ADMINISTERED [None]
  - OVERDOSE [None]
